FAERS Safety Report 6045389-5 (Version None)
Quarter: 2009Q1

REPORT INFORMATION
  Report Type: 
  Country: None (occurrence: None)
  Receive Date: 20090121
  Receipt Date: 20090114
  Transmission Date: 20090719
  Serious: No
  Sender: FDA-Public Use
  Company Number: US-JNJFOC-20090104067

PATIENT
  Sex: Female

DRUGS (2)
  1. DURAGESIC-100 [Suspect]
     Dosage: 25 MCG 2 EVERY 48 HOURS
     Route: 062
  2. DURAGESIC-100 [Suspect]
     Indication: DRUG USE FOR UNKNOWN INDICATION
     Dosage: 25 MCG 2 EVERY 72 HOURS
     Route: 062

REACTIONS (2)
  - DRUG EFFECT DECREASED [None]
  - DRUG PRESCRIBING ERROR [None]
